FAERS Safety Report 7265093-5 (Version None)
Quarter: 2011Q1

REPORT INFORMATION
  Report Type: 
  Country: None (occurrence: None)
  Receive Date: 20110131
  Receipt Date: 20110127
  Transmission Date: 20110831
  Serious: Yes (Congenital Anomaly)
  Sender: FDA-Public Use
  Company Number: DE-SANOFI-AVENTIS-2010SA051075

PATIENT
  Sex: Female

DRUGS (2)
  1. RHINISAN [Suspect]
     Route: 064
     Dates: start: 20100101, end: 20100101
  2. RHINISAN [Suspect]
     Indication: CHRONIC SINUSITIS
     Route: 064
     Dates: end: 20100101

REACTIONS (2)
  - DRUG EXPOSURE DURING PREGNANCY [None]
  - CEREBRAL VENTRICLE DILATATION [None]
